FAERS Safety Report 19087826 (Version 1)
Quarter: 2021Q2

REPORT INFORMATION
  Report Type: Report from Study
  Country: US (occurrence: US)
  Receive Date: 20210402
  Receipt Date: 20210402
  Transmission Date: 20210717
  Serious: Yes (Other)
  Sender: FDA-Public Use
  Company Number: US-MYLANLABS-2021M1017079

PATIENT
  Sex: Female
  Weight: 109 kg

DRUGS (1)
  1. GLATIRAMER ACETATE INJECTION [Suspect]
     Active Substance: GLATIRAMER ACETATE
     Indication: MULTIPLE SCLEROSIS
     Dosage: 40 MILLIGRAM, 3XW
     Route: 058

REACTIONS (9)
  - Pruritus [Unknown]
  - Infection [Unknown]
  - Injection site mass [Unknown]
  - Injection site pain [Unknown]
  - Injection site swelling [Unknown]
  - Limb discomfort [Unknown]
  - Injection site pruritus [Unknown]
  - Systemic infection [Unknown]
  - Rash [Unknown]
